FAERS Safety Report 5012000-1 (Version None)
Quarter: 2006Q2

REPORT INFORMATION
  Report Type: 
  Country: None (occurrence: None)
  Receive Date: 20060526
  Receipt Date: 20060515
  Transmission Date: 20061013
  Serious: Yes (Hospitalization)
  Sender: FDA-Public Use
  Company Number: FR-ABBOTT-06P-056-0333173-00

PATIENT
  Sex: Male

DRUGS (8)
  1. MICROPAKINE [Suspect]
     Indication: EPILEPSY
     Route: 048
     Dates: start: 20041207, end: 20060213
  2. CLONAZEPAM [Concomitant]
     Indication: EPILEPSY
     Dates: start: 20051101
  3. CLONAZEPAM [Concomitant]
     Route: 042
  4. CLONAZEPAM [Concomitant]
     Route: 042
  5. CLONAZEPAM [Concomitant]
     Route: 050
     Dates: start: 20060211
  6. LAMOTRIGINE [Concomitant]
     Indication: EPILEPSY
     Route: 048
     Dates: start: 20050201
  7. LAMOTRIGINE [Concomitant]
     Route: 048
     Dates: start: 20060215
  8. ETHOSUXIMIDE [Concomitant]
     Dates: start: 20050201

REACTIONS (8)
  - BLOOD MAGNESIUM DECREASED [None]
  - BLOOD PHOSPHORUS DECREASED [None]
  - CREATININE URINE INCREASED [None]
  - DIARRHOEA [None]
  - HYPERCALCIURIA [None]
  - MYOCLONUS [None]
  - RENAL TUBULAR ACIDOSIS [None]
  - VOMITING [None]
